FAERS Safety Report 6529504-2 (Version None)
Quarter: 2010Q1

REPORT INFORMATION
  Report Type: 
  Country: None (occurrence: None)
  Receive Date: 20100107
  Receipt Date: 20100104
  Transmission Date: 20100710
  Serious: Yes (Hospitalization, Other)
  Sender: FDA-Public Use
  Company Number: GB-NAPPMUNDI-GBR-2009-0005968

PATIENT
  Sex: Female

DRUGS (12)
  1. BUTRANS 20MG TRANSDERMAL PATCH [Suspect]
     Indication: FIBROMYALGIA
     Dosage: 20 MCG, Q1H
     Route: 062
  2. BUTRANS 20MG TRANSDERMAL PATCH [Suspect]
     Dosage: 5 UNK, UNK
     Route: 062
  3. MORPHINE SULFATE [Suspect]
     Indication: PAIN
     Dosage: 10 MG, PRN
     Route: 048
  4. INFUMORPH [Suspect]
     Indication: FIBROMYALGIA
     Dosage: 60 MG, BID
     Route: 048
     Dates: start: 20091111, end: 20091119
  5. PARACETAMOL [Concomitant]
     Dosage: 1 GRAM, QID
     Route: 048
  6. TRIMIPRAMINE [Concomitant]
     Dosage: 100 MG, NOCTE
     Route: 048
  7. CITALOPRAM HYDROBROMIDE [Concomitant]
     Dosage: 40 MG, DAILY
     Route: 048
  8. DIAZEPAM [Concomitant]
     Dosage: 5 MG, BID
     Route: 048
  9. PREGABALIN [Concomitant]
     Dosage: 300 MG, BID
     Route: 048
  10. METFORMIN HYDROCHLORIDE [Concomitant]
     Dosage: 500 MG, NOCTE
     Route: 048
  11. FUROSEMIDE [Concomitant]
     Dosage: 40 MG, BID
     Route: 048
  12. OMEPRAZOLE [Concomitant]
     Dosage: 20 MG, DAILY
     Route: 048

REACTIONS (10)
  - CLAVICLE FRACTURE [None]
  - CONFUSIONAL STATE [None]
  - DEPRESSED LEVEL OF CONSCIOUSNESS [None]
  - DRUG INEFFECTIVE [None]
  - FALL [None]
  - INCORRECT DOSE ADMINISTERED [None]
  - LIMB DISCOMFORT [None]
  - MALAISE [None]
  - OVERDOSE [None]
  - SOMNOLENCE [None]
